FAERS Safety Report 4365672-9 (Version None)
Quarter: 2004Q2

REPORT INFORMATION
  Report Type: 
  Country: None (occurrence: None)
  Receive Date: 20040520
  Receipt Date: 20040430
  Transmission Date: 20050107
  Serious: Yes (Other)
  Sender: FDA-Public Use
  Company Number: 206537

PATIENT
  Age: 16 Year
  Sex: Male

DRUGS (1)
  1. NUTROPIN AQ [Suspect]
     Dosage: 2.4 MG, 6/WEEK, INTRAVENOUS
     Route: 042

REACTIONS (1)
  - NEOPLASM RECURRENCE [None]
